FAERS Safety Report 25533984 (Version 1)
Quarter: 2025Q3

REPORT INFORMATION
  Report Type: Spontaneous
  Country: EU (occurrence: EU)
  Receive Date: 20250709
  Receipt Date: 20250709
  Transmission Date: 20251020
  Serious: Yes (Other)
  Sender: PFIZER
  Company Number: EU-MYLANLABS-2025M1053283

PATIENT
  Age: 45 Year
  Sex: Male

DRUGS (1)
  1. TIGECYCLINE [Suspect]
     Active Substance: TIGECYCLINE
     Indication: Klebsiella infection

REACTIONS (2)
  - Pathogen resistance [Unknown]
  - Klebsiella infection [Recovered/Resolved]
